FAERS Safety Report 6308972-5 (Version None)
Quarter: 2009Q3

REPORT INFORMATION
  Report Type: 
  Country: None (occurrence: None)
  Receive Date: 20090813
  Receipt Date: 20090807
  Transmission Date: 20100115
  Serious: Yes (Other)
  Sender: FDA-Public Use
  Company Number: US-JNJCH-2009021428

PATIENT
  Age: 55 Year
  Sex: Female
  Weight: 57.6 kg

DRUGS (2)
  1. LISTERINE TOTAL CARE ANTICAVITY MOUTHWASH [Suspect]
     Indication: DENTAL DISORDER PROPHYLAXIS
     Dosage: TEXT:1/2 CAPFUL TWICE DAILY
     Route: 048
  2. PENICILLINE [Concomitant]
     Indication: GINGIVAL INFECTION
     Dosage: TEXT:500 MG FOUR TIMES DAILY
     Route: 065
     Dates: start: 20090727, end: 20090807

REACTIONS (1)
  - STOMATITIS [None]
